FAERS Safety Report 4819502-9 (Version None)
Quarter: 2005Q4

REPORT INFORMATION
  Report Type: 
  Country: None (occurrence: None)
  Receive Date: 20051103
  Receipt Date: 20050530
  Transmission Date: 20060501
  Serious: Yes (Death)
  Sender: FDA-Public Use
  Company Number: PHHO2005LK17060

PATIENT
  Sex: 0

DRUGS (1)
  1. GLEEVEC [Suspect]

REACTIONS (2)
  - GASTROENTERITIS [None]
  - SEPSIS [None]
